FAERS Safety Report 12751115 (Version 1)
Quarter: 2016Q3

REPORT INFORMATION
  Report Type: Spontaneous
  Country: US (occurrence: US)
  Receive Date: 20160915
  Receipt Date: 20160915
  Transmission Date: 20161109
  Serious: Yes (Other)
  Sender: FDA-Public Use
  Company Number: US-ASTELLAS-2016US002468

PATIENT
  Age: 54 Year
  Sex: Male

DRUGS (1)
  1. XTANDI [Suspect]
     Active Substance: ENZALUTAMIDE
     Indication: PROSTATE CANCER
     Route: 065
     Dates: end: 201602

REACTIONS (7)
  - Prostatic specific antigen increased [Unknown]
  - Malignant neoplasm progression [Unknown]
  - Fatigue [Unknown]
  - Bone pain [Unknown]
  - Asthenia [Unknown]
  - Hot flush [Unknown]
  - Headache [Unknown]

NARRATIVE: CASE EVENT DATE: 201602
